FAERS Safety Report 6435707-8 (Version None)
Quarter: 2009Q4

REPORT INFORMATION
  Report Type: 
  Country: None (occurrence: None)
  Receive Date: 20091111
  Receipt Date: 20091110
  Transmission Date: 20100525
  Serious: No
  Sender: FDA-Public Use
  Company Number: US-BAYER-200916281BCC

PATIENT
  Age: 16 Year
  Sex: Male

DRUGS (2)
  1. DESONATE GEL [Suspect]
     Indication: ECZEMA
     Route: 061
     Dates: start: 20090101, end: 20090101
  2. DESONATE GEL [Suspect]
     Route: 061
     Dates: start: 20090101, end: 20090825

REACTIONS (1)
  - ACNE [None]
